FAERS Safety Report 18537386 (Version 1)
Quarter: 2020Q4

REPORT INFORMATION
  Report Type: Spontaneous
  Country: IT (occurrence: IT)
  Receive Date: 20201124
  Receipt Date: 20201124
  Transmission Date: 20210114
  Serious: Yes (Disabling, Other)
  Sender: FDA-Public Use
  Company Number: IT-AUROBINDO-AUR-APL-2020-057188

PATIENT
  Age: 26 Year
  Sex: Female
  Weight: 56 kg

DRUGS (3)
  1. MAG 2 [Concomitant]
     Active Substance: MAGNESIUM
     Indication: PRODUCT USED FOR UNKNOWN INDICATION
     Dosage: UNK
     Route: 048
  2. RELVAR ELLIPTA [Concomitant]
     Active Substance: FLUTICASONE FUROATE\VILANTEROL TRIFENATATE
     Indication: ASTHMA
     Dosage: UNK
     Route: 065
  3. PAROXETINE. [Suspect]
     Active Substance: PAROXETINE
     Indication: AFFECTIVE DISORDER
     Dosage: 20 MILLIGRAM, ONCE A DAY
     Route: 048
     Dates: start: 20190524, end: 20200801

REACTIONS (5)
  - Anorgasmia [Not Recovered/Not Resolved]
  - Loss of libido [Not Recovered/Not Resolved]
  - Anhedonia [Not Recovered/Not Resolved]
  - Mental impairment [Not Recovered/Not Resolved]
  - Flat affect [Not Recovered/Not Resolved]

NARRATIVE: CASE EVENT DATE: 20190626
